FAERS Safety Report 8031468-X (Version None)
Quarter: 2012Q1

REPORT INFORMATION
  Report Type: 
  Country: None (occurrence: None)
  Receive Date: 20120109
  Receipt Date: 20111230
  Transmission Date: 20120608
  Serious: Yes (Other)
  Sender: FDA-Public Use
  Company Number: JP-ABBOTT-12P-087-0888583-00

PATIENT
  Age: 61 Year
  Sex: Male

DRUGS (7)
  1. PROPRANOLOL HCL [Suspect]
     Indication: PRODUCT USED FOR UNKNOWN INDICATION
  2. THERAPEUTIC RADIOPHARMACEUTICALS [Concomitant]
     Indication: PRODUCT USED FOR UNKNOWN INDICATION
     Dosage: 60 GY IN 30 FRACTIONS OVER 6 WEEKS
  3. FAMOTIDINE [Suspect]
     Indication: PRODUCT USED FOR UNKNOWN INDICATION
  4. VALPROIC ACID [Suspect]
     Indication: PRODUCT USED FOR UNKNOWN INDICATION
  5. TEMOZOLOMIDE [Suspect]
     Indication: GLIOBLASTOMA
     Dosage: 75 MG/M2 DAILY
  6. TEMOZOLOMIDE [Suspect]
     Dosage: DAILY
  7. BETAMETHASONE [Concomitant]
     Indication: PRODUCT USED FOR UNKNOWN INDICATION
     Route: 042

REACTIONS (8)
  - HEPATITIS B [None]
  - LYMPHOCYTE COUNT DECREASED [None]
  - ALANINE AMINOTRANSFERASE INCREASED [None]
  - AGRANULOCYTOSIS [None]
  - ASPARTATE AMINOTRANSFERASE INCREASED [None]
  - HEPATITIS ACUTE [None]
  - NEUTROPHIL COUNT DECREASED [None]
  - WHITE BLOOD CELL COUNT DECREASED [None]
